FAERS Safety Report 19608342 (Version 1)
Quarter: 2021Q3

REPORT INFORMATION
  Report Type: Report from Study
  Country: US (occurrence: US)
  Receive Date: 20210726
  Receipt Date: 20210726
  Transmission Date: 20211014
  Serious: No
  Sender: FDA-Public Use
  Company Number: NVSC2021US160193

PATIENT
  Age: 66 Year
  Sex: Male

DRUGS (1)
  1. ENTRESTO [Suspect]
     Active Substance: SACUBITRIL\VALSARTAN
     Indication: CARDIAC FAILURE
     Dosage: 97 MG, ONCE2SDO
     Route: 048
     Dates: start: 20210503

REACTIONS (3)
  - Pruritus [Unknown]
  - Asthenia [Unknown]
  - Lung disorder [Unknown]

NARRATIVE: CASE EVENT DATE: 20210618
